FAERS Safety Report 4380897-4 (Version None)
Quarter: 2004Q2

REPORT INFORMATION
  Report Type: 
  Country: None (occurrence: None)
  Receive Date: 20040616
  Receipt Date: 20040604
  Transmission Date: 20050107
  Serious: Yes (Hospitalization)
  Sender: FDA-Public Use
  Company Number: GB-JNJFOC-20040601157

PATIENT
  Age: 59 Year
  Sex: Female

DRUGS (7)
  1. REMICADE [Suspect]
     Indication: RHEUMATOID ARTHRITIS
     Dosage: , 1 IN 8 WEEK, INTRAVENOUS
     Route: 042
  2. METHOTREXATE [Concomitant]
  3. PREDNISOLONE [Concomitant]
  4. ATENOLOL [Concomitant]
  5. BENDROFLUAZIDE (BENDROFLUMETHIAZIDE) [Concomitant]
  6. CITALOPRAM [Concomitant]
  7. DICLOFENAC SODIUM [Concomitant]

REACTIONS (1)
  - AMYOTROPHIC LATERAL SCLEROSIS [None]
